FAERS Safety Report 7211734-8 (Version None)
Quarter: 2011Q1

REPORT INFORMATION
  Report Type: 
  Country: None (occurrence: None)
  Receive Date: 20110105
  Receipt Date: 20101206
  Transmission Date: 20110831
  Serious: Yes (Hospitalization, Other)
  Sender: FDA-Public Use
  Company Number: JP-BAXTER-2010BH028443

PATIENT
  Age: 61 Year
  Sex: Male

DRUGS (7)
  1. KYTRIL [Concomitant]
     Indication: MULTIPLE MYELOMA
     Route: 041
     Dates: start: 20101014, end: 20101016
  2. CYCLOPHOSPHAMIDE [Suspect]
     Indication: MULTIPLE MYELOMA
     Route: 041
     Dates: start: 20101014, end: 20101015
  3. AMLODIPINE [Concomitant]
     Indication: HYPERTENSION
     Route: 048
     Dates: start: 20100916, end: 20101110
  4. UROMITEXAN [Concomitant]
     Indication: MULTIPLE MYELOMA
     Route: 042
     Dates: start: 20101014, end: 20101015
  5. TAKEPRON [Concomitant]
     Indication: GASTRIC ULCER
     Route: 048
     Dates: start: 20100916, end: 20101117
  6. FLUCONAZOLE [Concomitant]
     Indication: PROPHYLAXIS
     Route: 048
     Dates: start: 20100916, end: 20101117
  7. LENDORMIN [Concomitant]
     Indication: INSOMNIA
     Route: 048
     Dates: start: 20100916, end: 20101117

REACTIONS (3)
  - RENAL IMPAIRMENT [None]
  - HYPERTENSION [None]
  - NEPHROTIC SYNDROME [None]
